FAERS Safety Report 6361194-4 (Version None)
Quarter: 2009Q3

REPORT INFORMATION
  Report Type: 
  Country: None (occurrence: None)
  Receive Date: 20090918
  Receipt Date: 20090914
  Transmission Date: 20100115
  Serious: Yes (Other)
  Sender: FDA-Public Use
  Company Number: GB-TEVA-209426ISR

PATIENT
  Age: 63 Year
  Sex: Female
  Weight: 61.8 kg

DRUGS (3)
  1. METHOTREXATE [Suspect]
  2. ETANERCEPT [Suspect]
     Indication: TUBERCULOSIS
     Route: 058
     Dates: start: 20090406, end: 20090501
  3. SULFASALAZINE [Suspect]

REACTIONS (6)
  - ANAEMIA [None]
  - BLOOD ALBUMIN DECREASED [None]
  - DIARRHOEA [None]
  - LYMPHADENOPATHY [None]
  - PLEURAL EFFUSION [None]
  - WEIGHT DECREASED [None]
